FAERS Safety Report 6343144-X (Version None)
Quarter: 2009Q3

REPORT INFORMATION
  Report Type: 
  Country: None (occurrence: None)
  Receive Date: 20090821
  Receipt Date: 20090514
  Transmission Date: 20100115
  Serious: No
  Sender: FDA-Public Use
  Company Number: 8046413

PATIENT
  Sex: Female

DRUGS (1)
  1. CIMZIA [Suspect]
     Dates: start: 20081229

REACTIONS (2)
  - GLOSSITIS [None]
  - WEIGHT DECREASED [None]
